FAERS Safety Report 9670605 (Version 1)
Quarter: 2013Q4

REPORT INFORMATION
  Report Type: Spontaneous
  Country: US (occurrence: US)
  Receive Date: 20131106
  Receipt Date: 20131106
  Transmission Date: 20140711
  Serious: No
  Sender: FDA-Public Use
  Company Number: US-BIOGENIDEC-2013BI104757

PATIENT
  Sex: Female

DRUGS (3)
  1. AVONEX [Suspect]
     Indication: MULTIPLE SCLEROSIS
     Route: 030
     Dates: start: 20010501
  2. COPAXONE [Concomitant]
  3. AMPYRA [Concomitant]

REACTIONS (2)
  - Blood cholesterol increased [Not Recovered/Not Resolved]
  - Muscle spasms [Recovered/Resolved]
